FAERS Safety Report 26132131 (Version 1)
Quarter: 2025Q4

REPORT INFORMATION
  Report Type: Spontaneous
  Country: GB (occurrence: GB)
  Receive Date: 20251208
  Receipt Date: 20251208
  Transmission Date: 20260117
  Serious: Yes (Hospitalization)
  Sender: YILING PHARMACEUTICAL LTD
  Company Number: GB-YILING-2025YPLIT0027

PATIENT
  Age: 36 Year
  Sex: Male

DRUGS (24)
  1. PREGABALIN [Suspect]
     Active Substance: PREGABALIN
     Indication: Neuralgia
     Route: 065
  2. PREGABALIN [Suspect]
     Active Substance: PREGABALIN
     Route: 065
     Dates: start: 202505
  3. PREGABALIN [Suspect]
     Active Substance: PREGABALIN
     Route: 065
     Dates: start: 202506
  4. ZUCLOPENTHIXOL DECANOATE [Suspect]
     Active Substance: ZUCLOPENTHIXOL DECANOATE
     Indication: Antipsychotic therapy
     Dosage: LONG-ACTING FORTNIGHTLY
     Route: 065
     Dates: start: 2024
  5. ZUCLOPENTHIXOL DECANOATE [Suspect]
     Active Substance: ZUCLOPENTHIXOL DECANOATE
     Dosage: LONG-ACTING
     Route: 065
     Dates: start: 202505
  6. ZUCLOPENTHIXOL DECANOATE [Suspect]
     Active Substance: ZUCLOPENTHIXOL DECANOATE
     Dosage: LONG-ACTING
     Route: 065
     Dates: start: 202506
  7. CLONAZEPAM [Concomitant]
     Active Substance: CLONAZEPAM
     Indication: Antipsychotic therapy
     Route: 065
     Dates: start: 202505
  8. CLONAZEPAM [Concomitant]
     Active Substance: CLONAZEPAM
     Route: 065
     Dates: start: 202506
  9. CHOLECALCIFEROL [Concomitant]
     Active Substance: CHOLECALCIFEROL
     Indication: Product used for unknown indication
     Route: 065
     Dates: start: 202505
  10. CHOLECALCIFEROL [Concomitant]
     Active Substance: CHOLECALCIFEROL
     Route: 065
     Dates: start: 202506
  11. CYANOCOBALAMIN [Concomitant]
     Active Substance: CYANOCOBALAMIN
     Indication: Product used for unknown indication
     Route: 065
     Dates: start: 202505
  12. CYANOCOBALAMIN [Concomitant]
     Active Substance: CYANOCOBALAMIN
     Route: 065
     Dates: start: 202506
  13. LORATADINE [Concomitant]
     Active Substance: LORATADINE
     Indication: Product used for unknown indication
     Route: 065
     Dates: start: 202505
  14. LORATADINE [Concomitant]
     Active Substance: LORATADINE
     Route: 065
     Dates: start: 202506
  15. ACETAMINOPHEN [Concomitant]
     Active Substance: ACETAMINOPHEN
     Indication: Product used for unknown indication
     Route: 065
     Dates: start: 202505
  16. ACETAMINOPHEN [Concomitant]
     Active Substance: ACETAMINOPHEN
     Dosage: WHEN REQUIRED
     Route: 065
     Dates: start: 202506
  17. IBUPROFEN [Concomitant]
     Active Substance: IBUPROFEN
     Indication: Product used for unknown indication
     Route: 065
     Dates: start: 202505
  18. IBUPROFEN [Concomitant]
     Active Substance: IBUPROFEN
     Dosage: WHEN REQUIRED
     Route: 065
     Dates: start: 202506
  19. NICOTINE [Concomitant]
     Active Substance: NICOTINE
     Indication: Product used for unknown indication
     Dosage: NICOTINE REPLACEMENT THERAPY
     Route: 065
     Dates: start: 202505
  20. NICOTINE [Concomitant]
     Active Substance: NICOTINE
     Dosage: WHEN REQUIRED
     Route: 065
     Dates: start: 202506
  21. NICOTINE [Concomitant]
     Active Substance: NICOTINE
     Route: 065
     Dates: start: 202506
  22. CODEINE PHOSPHATE [Concomitant]
     Active Substance: CODEINE PHOSPHATE
     Indication: Product used for unknown indication
     Dosage: WHEN REQUIRED
     Route: 065
     Dates: start: 202506
  23. LORAZEPAM [Concomitant]
     Active Substance: LORAZEPAM
     Dosage: WHEN REQUIRED MAXIMUM 2 MG/24 HOURS
     Route: 065
     Dates: start: 202506
  24. BISOPROLOL FUMARATE [Concomitant]
     Active Substance: BISOPROLOL FUMARATE
     Indication: Product used for unknown indication
     Route: 065
     Dates: start: 202506

REACTIONS (1)
  - Priapism [Recovered/Resolved]

NARRATIVE: CASE EVENT DATE: 20250601
